FAERS Safety Report 6173489-8 (Version None)
Quarter: 2009Q2

REPORT INFORMATION
  Report Type: 
  Country: None (occurrence: None)
  Receive Date: 20090430
  Receipt Date: 20090422
  Transmission Date: 20091009
  Serious: Yes (Life-Threatening, Hospitalization)
  Sender: FDA-Public Use
  Company Number: A0781081A

PATIENT
  Sex: Female
  Weight: 72 kg

DRUGS (5)
  1. SERETIDE [Suspect]
     Indication: ASTHMA
     Route: 055
     Dates: start: 20090314, end: 20090421
  2. FORADIL [Concomitant]
     Dosage: 1CAP TWICE PER DAY
     Route: 048
     Dates: start: 19980202
  3. FORMOTEROL FUMARATE [Concomitant]
     Dosage: 1CAP SIX TIMES PER DAY
     Route: 048
     Dates: start: 20070401
  4. COMBIVENT [Concomitant]
     Dosage: 1CAP TWICE PER DAY
     Route: 048
     Dates: start: 19990403
  5. FLUTICASONE PROPIONATE [Concomitant]
     Dosage: 1PUFF TWICE PER DAY
     Dates: start: 19990101

REACTIONS (2)
  - PNEUMONIA [None]
  - THROMBOSIS [None]
